FAERS Safety Report 16004489 (Version 1)
Quarter: 2019Q1

REPORT INFORMATION
  Report Type: Spontaneous
  Country: US (occurrence: US)
  Receive Date: 20190225
  Receipt Date: 20190225
  Transmission Date: 20190418
  Serious: No
  Sender: FDA-Public Use
  Company Number: None

PATIENT
  Age: 43 Year
  Sex: Female

DRUGS (1)
  1. METHYLPHENIDATE ER 54 MG [Suspect]
     Active Substance: METHYLPHENIDATE
     Indication: ATTENTION DEFICIT/HYPERACTIVITY DISORDER
     Dosage: ?          QUANTITY:1 TABLET(S);?
     Dates: start: 20190201, end: 20190225

REACTIONS (8)
  - Dreamy state [None]
  - Insomnia [None]
  - Impaired work ability [None]
  - Panic attack [None]
  - Palpitations [None]
  - Muscle spasms [None]
  - Muscle twitching [None]
  - Feeling abnormal [None]
